FAERS Safety Report 15592770 (Version 1)
Quarter: 2018Q4

REPORT INFORMATION
  Report Type: Spontaneous
  Country: US (occurrence: US)
  Receive Date: 20181107
  Receipt Date: 20181107
  Transmission Date: 20190205
  Serious: Yes (Life-Threatening, Hospitalization)
  Sender: FDA-Public Use
  Company Number: None

PATIENT
  Age: 71 Year
  Sex: Male

DRUGS (3)
  1. FLUOXETINE 10 MG [Concomitant]
     Active Substance: FLUOXETINE HYDROCHLORIDE
  2. GEMFIBROZIL 600 MG [Concomitant]
     Active Substance: GEMFIBROZIL
  3. WARFARIN [Suspect]
     Active Substance: WARFARIN

REACTIONS (3)
  - Hypertension [None]
  - Diplopia [None]
  - Dizziness [None]

NARRATIVE: CASE EVENT DATE: 20180110
